FAERS Safety Report 7006530-0 (Version None)
Quarter: 2010Q3

REPORT INFORMATION
  Report Type: 
  Country: None (occurrence: None)
  Receive Date: 20100921
  Receipt Date: 20100921
  Transmission Date: 20110219
  Serious: Yes (Death)
  Sender: FDA-Public Use
  Company Number: None

PATIENT
  Age: 49 Year
  Sex: Female

DRUGS (13)
  1. LETAIRIS [Suspect]
     Indication: PULMONARY HYPERTENSION
     Dosage: 5MG  DAILY ORAL
     Route: 048
     Dates: start: 20100817, end: 20100905
  2. ALDACTONE [Concomitant]
  3. FOSAMAX [Concomitant]
  4. PRILOSEC [Concomitant]
  5. METOLAZONE [Concomitant]
  6. LASIX [Concomitant]
  7. WARFARIN [Concomitant]
  8. PREDNISONE [Concomitant]
  9. REVATIO [Concomitant]
  10. SPIRIVA [Concomitant]
  11. SEREVENT [Concomitant]
  12. QVAR MDI [Concomitant]
  13. COMBIVENT [Concomitant]

REACTIONS (3)
  - CARDIAC FAILURE CONGESTIVE [None]
  - CONDITION AGGRAVATED [None]
  - DEEP VEIN THROMBOSIS [None]
